FAERS Safety Report 6256142-1 (Version None)
Quarter: 2009Q3

REPORT INFORMATION
  Report Type: 
  Country: None (occurrence: None)
  Receive Date: 20090706
  Receipt Date: 20090623
  Transmission Date: 20100115
  Serious: Yes (Other)
  Sender: FDA-Public Use
  Company Number: PHHY2009CR25398

PATIENT
  Sex: Female

DRUGS (1)
  1. EXFORGE [Suspect]
     Dosage: 320/5 MG
     Route: 048

REACTIONS (3)
  - FEELING ABNORMAL [None]
  - OEDEMA PERIPHERAL [None]
  - PULMONARY OEDEMA [None]
